FAERS Safety Report 9133683 (Version 3)
Quarter: 2013Q4

REPORT INFORMATION
  Report Type: Spontaneous
  Country: JP (occurrence: JP)
  Receive Date: 20130302
  Receipt Date: 20131119
  Transmission Date: 20140711
  Serious: Yes (Hospitalization, Other)
  Sender: FDA-Public Use
  Company Number: PHHY2013JP019199

PATIENT
  Sex: Female

DRUGS (1)
  1. APRESOLIN [Suspect]
     Indication: GESTATIONAL HYPERTENSION
     Dosage: UNK UKN, UNK
     Route: 048

REACTIONS (12)
  - Threatened labour [Unknown]
  - Genital haemorrhage [Unknown]
  - Abdominal pain [Unknown]
  - Premature labour [Unknown]
  - Goitre [Unknown]
  - Thyrotoxic crisis [Unknown]
  - Heart rate increased [Unknown]
  - Hyperhidrosis [Unknown]
  - Exophthalmos [Unknown]
  - Tremor [Unknown]
  - Feeling abnormal [Unknown]
  - Exposure during pregnancy [Unknown]
